FAERS Safety Report 4519887-7 (Version None)
Quarter: 2004Q4

REPORT INFORMATION
  Report Type: 
  Country: None (occurrence: None)
  Receive Date: 20041201
  Receipt Date: 20041201
  Transmission Date: 20050328
  Serious: Yes (Life-Threatening, Hospitalization)
  Sender: FDA-Public Use
  Company Number: None

PATIENT
  Age: 25 Year
  Sex: Female
  Weight: 107.5025 kg

DRUGS (1)
  1. DEPO-MEDROL [Suspect]
     Indication: ASTHMA
     Dates: start: 20040610, end: 20040610

REACTIONS (3)
  - ANAPHYLACTIC SHOCK [None]
  - MALAISE [None]
  - PNEUMONIA [None]
